FAERS Safety Report 10258348 (Version 1)
Quarter: 2014Q2

REPORT INFORMATION
  Report Type: Spontaneous
  Country: US (occurrence: None)
  Receive Date: 20140623
  Receipt Date: 20140623
  Transmission Date: 20141212
  Serious: Yes (Hospitalization, Other)
  Sender: FDA-Public Use
  Company Number: None

PATIENT
  Age: 26 Year
  Sex: Male
  Weight: 74.84 kg

DRUGS (2)
  1. XTREME DMZ [Suspect]
     Indication: MUSCLE BUILDING THERAPY
     Route: 048
     Dates: start: 20140401, end: 20140425
  2. DYMETHAZINE [Suspect]

REACTIONS (1)
  - Cholestatic liver injury [None]
